FAERS Safety Report 23088879 (Version 1)
Quarter: 2023Q4

REPORT INFORMATION
  Report Type: Spontaneous
  Country: US (occurrence: US)
  Receive Date: 20231020
  Receipt Date: 20231020
  Transmission Date: 20240109
  Serious: Yes (Other)
  Sender: FDA-Public Use
  Company Number: US-MLMSERVICE-20231005-4588433-1

PATIENT

DRUGS (1)
  1. ESTRADIOL [Suspect]
     Active Substance: ESTRADIOL
     Indication: Uterine haemorrhage
     Dosage: 1 MILLIGRAM, BID (EVERY 12 HOURS)
     Route: 048

REACTIONS (3)
  - Electrocardiogram ST-T segment abnormal [Unknown]
  - Myocardial necrosis marker increased [Unknown]
  - Pulmonary embolism [Unknown]
